FAERS Safety Report 4940495-8 (Version None)
Quarter: 2006Q1

REPORT INFORMATION
  Report Type: 
  Country: None (occurrence: None)
  Receive Date: 20060131
  Receipt Date: 20060105
  Transmission Date: 20060701
  Serious: No
  Sender: FDA-Public Use
  Company Number: 200517499US

PATIENT
  Sex: Female

DRUGS (2)
  1. KETEK [Suspect]
     Dosage: PO
     Route: 048
  2. KETEK [Suspect]
     Dosage: PO
     Route: 048
     Dates: start: 20050926

REACTIONS (2)
  - DIARRHOEA [None]
  - NAUSEA [None]
